FAERS Safety Report 9714122 (Version 2)
Quarter: 2013Q4

REPORT INFORMATION
  Report Type: Spontaneous
  Country: US (occurrence: US)
  Receive Date: 20131126
  Receipt Date: 20131126
  Transmission Date: 20140711
  Serious: No
  Sender: FDA-Public Use
  Company Number: US-GILEAD-2008-0018727

PATIENT
  Sex: Female
  Weight: 70.76 kg

DRUGS (18)
  1. LETAIRIS [Suspect]
     Indication: PULMONARY ARTERIAL HYPERTENSION
     Route: 048
     Dates: start: 20080930
  2. REVATIO [Concomitant]
  3. ALLPURINOL [Concomitant]
  4. ATENOLOL [Concomitant]
  5. COZAAR [Concomitant]
  6. CIPRO [Concomitant]
  7. PREDNISONE [Concomitant]
  8. FLUTICASONE [Concomitant]
  9. ADVAIR [Concomitant]
  10. CATAPRES-TTS [Concomitant]
  11. PROAIR HFA [Concomitant]
  12. ASPIRIN [Concomitant]
  13. FAMOTIDINE [Concomitant]
  14. IBUPROFEN [Concomitant]
  15. DILTIAZEM [Concomitant]
  16. XOPENEX [Concomitant]
  17. FOSAMAX [Concomitant]
  18. MULTIVITAMIN [Concomitant]

REACTIONS (4)
  - Vision blurred [None]
  - Dizziness [None]
  - Fatigue [None]
  - Dyspnoea [None]
